FAERS Safety Report 5467575-5 (Version None)
Quarter: 2007Q3

REPORT INFORMATION
  Report Type: 
  Country: None (occurrence: None)
  Receive Date: 20070921
  Receipt Date: 20070906
  Transmission Date: 20080115
  Serious: Yes (Other)
  Sender: FDA-Public Use
  Company Number: 2007US-09814

PATIENT
  Age: 45 Year
  Sex: Female

DRUGS (1)
  1. GANCICLOVIR [Suspect]
     Indication: DRUG USE FOR UNKNOWN INDICATION
     Dosage: IMPLANT

REACTIONS (3)
  - ENDOPHTHALMITIS [None]
  - HYPOPYON [None]
  - IMPLANT EXPULSION [None]
